FAERS Safety Report 4972427-0 (Version None)
Quarter: 2006Q2

REPORT INFORMATION
  Report Type: 
  Country: None (occurrence: None)
  Receive Date: 20060413
  Receipt Date: 20050809
  Transmission Date: 20061013
  Serious: Yes (Hospitalization, Other)
  Sender: FDA-Public Use
  Company Number: US-MERCK-0508USA01845

PATIENT
  Age: 27 Year
  Sex: Male
  Weight: 75 kg

DRUGS (7)
  1. VIOXX [Suspect]
     Indication: INFLAMMATION
     Route: 048
     Dates: start: 20010801, end: 20020201
  2. VIOXX [Suspect]
     Route: 048
     Dates: start: 20010801, end: 20020201
  3. VIOXX [Suspect]
     Route: 048
     Dates: start: 20010801, end: 20020201
  4. VIOXX [Suspect]
     Indication: ARTHRITIS
     Route: 048
     Dates: start: 20010801, end: 20020201
  5. VIOXX [Suspect]
     Route: 048
     Dates: start: 20010801, end: 20020201
  6. VIOXX [Suspect]
     Route: 048
     Dates: start: 20010801, end: 20020201
  7. IBUPROFEN [Concomitant]
     Route: 065

REACTIONS (5)
  - CARDIOVASCULAR DISORDER [None]
  - CEREBROVASCULAR ACCIDENT [None]
  - CONVULSION [None]
  - OVERDOSE [None]
  - SKIN LACERATION [None]
